FAERS Safety Report 5480459-1 (Version None)
Quarter: 2007Q4

REPORT INFORMATION
  Report Type: 
  Country: None (occurrence: None)
  Receive Date: 20071009
  Receipt Date: 20071002
  Transmission Date: 20080405
  Serious: Yes (Other)
  Sender: FDA-Public Use
  Company Number: B0489648A

PATIENT
  Age: 28 Year
  Sex: Male
  Weight: 74.7 kg

DRUGS (4)
  1. FOSAMPRENAVIR [Suspect]
     Indication: HIV INFECTION
     Dosage: 1TAB TWICE PER DAY
     Route: 048
     Dates: start: 20070706
  2. KIVEXA [Suspect]
     Indication: HIV INFECTION
     Dosage: 1TAB PER DAY
     Route: 048
     Dates: start: 20070706
  3. RITONAVIR [Suspect]
     Indication: HIV INFECTION
     Dosage: 1CAP TWICE PER DAY
     Route: 048
     Dates: start: 20070706
  4. NALTREXONE [Suspect]
     Dosage: 1000MG SINGLE DOSE
     Route: 058
     Dates: start: 20070915

REACTIONS (1)
  - ALANINE AMINOTRANSFERASE INCREASED [None]
